FAERS Safety Report 6126947-6 (Version None)
Quarter: 2009Q1

REPORT INFORMATION
  Report Type: 
  Country: None (occurrence: None)
  Receive Date: 20090320
  Receipt Date: 20081006
  Transmission Date: 20090719
  Serious: No
  Sender: FDA-Public Use
  Company Number: US-ABBOTT-08P-163-0481074-00

PATIENT
  Sex: Female
  Weight: 63.56 kg

DRUGS (8)
  1. ERYTHROMYCIN [Suspect]
     Indication: DRUG USE FOR UNKNOWN INDICATION
     Dosage: NOT REPORTED
  2. DIPHENHYDRA. HCL W/PARACETAMOL/PSEUDOEPH. HCL [Concomitant]
     Indication: PRURITUS
     Route: 048
  3. NARINE [Concomitant]
     Indication: HYPERSENSITIVITY
     Route: 048
     Dates: start: 20050101
  4. MELOXICAM [Concomitant]
     Indication: PAIN
     Route: 048
     Dates: start: 20050101
  5. DOMPERIDONE MALEATE [Concomitant]
     Indication: GASTROOESOPHAGEAL REFLUX DISEASE
     Route: 048
     Dates: start: 20080101
  6. VIGRAN [Concomitant]
     Indication: VITAMIN SUPPLEMENTATION
     Route: 048
  7. RABEPRAZOLE SODIUM [Concomitant]
     Indication: GASTROOESOPHAGEAL REFLUX DISEASE
     Route: 048
  8. CALCIUM GLYCEROPHOSPHATE [Concomitant]
     Indication: FLATULENCE
     Dosage: NOT REPORTED
     Route: 048

REACTIONS (1)
  - VOMITING [None]
